FAERS Safety Report 26064243 (Version 1)
Quarter: 2025Q4

REPORT INFORMATION
  Report Type: Spontaneous
  Country: GB (occurrence: GB)
  Receive Date: 20251119
  Receipt Date: 20251119
  Transmission Date: 20260117
  Serious: Yes (Other)
  Sender: AMGEN
  Company Number: GB-AMGEN-GBRSP2025226537

PATIENT
  Sex: Male

DRUGS (1)
  1. ARANESP [Suspect]
     Active Substance: DARBEPOETIN ALFA
     Indication: Product used for unknown indication
     Dosage: 80 MICROGRAM (STRENGTH: 80 MG), Q4WK
     Route: 058

REACTIONS (1)
  - Dialysis [Not Recovered/Not Resolved]
